FAERS Safety Report 24881478 (Version 2)
Quarter: 2025Q1

REPORT INFORMATION
  Report Type: Spontaneous
  Country: NL (occurrence: NL)
  Receive Date: 20250124
  Receipt Date: 20250128
  Transmission Date: 20250409
  Serious: No
  Sender: ASTELLAS
  Company Number: NL-ASTELLAS-2025-AER-004185

PATIENT
  Age: 56 Year
  Sex: Female

DRUGS (1)
  1. VEOZAH [Suspect]
     Active Substance: FEZOLINETANT
     Indication: Menopausal symptoms
     Route: 065
     Dates: start: 20250113, end: 20250115

REACTIONS (2)
  - Alanine aminotransferase increased [Unknown]
  - Aspartate aminotransferase increased [Unknown]

NARRATIVE: CASE EVENT DATE: 20250117
